FAERS Safety Report 7032853-5 (Version None)
Quarter: 2010Q4

REPORT INFORMATION
  Report Type: 
  Country: None (occurrence: None)
  Receive Date: 20101007
  Receipt Date: 20090820
  Transmission Date: 20110411
  Serious: No
  Sender: FDA-Public Use
  Company Number: US-PFIZER INC-2009258584

PATIENT
  Sex: Female

DRUGS (1)
  1. ANTIVERT [Suspect]

REACTIONS (2)
  - ARTHROPATHY [None]
  - DRUG PRESCRIBING ERROR [None]
